FAERS Safety Report 9929844 (Version 1)
Quarter: 2014Q1

REPORT INFORMATION
  Report Type: Report from Study
  Country: US (occurrence: US)
  Receive Date: 20140227
  Receipt Date: 20140227
  Transmission Date: 20141002
  Serious: No
  Sender: FDA-Public Use
  Company Number: US-ABBVIE-12P-163-1001877-00

PATIENT
  Age: 58 Year
  Sex: Female
  Weight: 74.91 kg

DRUGS (9)
  1. HUMIRA (ABBOTT) [Suspect]
     Indication: RHEUMATOID ARTHRITIS
     Dates: start: 20120829, end: 20120919
  2. METHOTREXATE (NON-ABBOTT) [Concomitant]
     Indication: RHEUMATOID ARTHRITIS
  3. MOBIC [Concomitant]
     Indication: PAIN
  4. DICYCLOMINE (NON-ABBOTT) [Concomitant]
     Indication: PRODUCT USED FOR UNKNOWN INDICATION
  5. AMLODIPINE (NON-ABBOTT) [Concomitant]
     Indication: BLOOD PRESSURE
  6. PRENATAL VITAMIN (NON-ABBOTT) [Concomitant]
     Indication: VITAMIN SUPPLEMENTATION
  7. CITRACAL (NON-ABBOTT) [Concomitant]
     Indication: PRODUCT USED FOR UNKNOWN INDICATION
  8. ZANTAC [Concomitant]
     Indication: PRODUCT USED FOR UNKNOWN INDICATION
  9. ZYRTEC [Concomitant]
     Indication: PRODUCT USED FOR UNKNOWN INDICATION

REACTIONS (4)
  - Skin exfoliation [Not Recovered/Not Resolved]
  - Tinea pedis [Not Recovered/Not Resolved]
  - Blood pressure increased [Recovering/Resolving]
  - Rash [Not Recovered/Not Resolved]
